FAERS Safety Report 5393261-6 (Version None)
Quarter: 2007Q3

REPORT INFORMATION
  Report Type: 
  Country: None (occurrence: None)
  Receive Date: 20070723
  Receipt Date: 20070712
  Transmission Date: 20080115
  Serious: Yes (Other)
  Sender: FDA-Public Use
  Company Number: US-JNJFOC-20070702992

PATIENT
  Sex: Female

DRUGS (1)
  1. REMICADE [Suspect]
     Indication: CROHN'S DISEASE

REACTIONS (5)
  - DRUG INEFFECTIVE [None]
  - EYE IRRITATION [None]
  - HEADACHE [None]
  - INFUSION RELATED REACTION [None]
  - ROSACEA [None]
